FAERS Safety Report 6174138-5 (Version None)
Quarter: 2009Q2

REPORT INFORMATION
  Report Type: 
  Country: None (occurrence: None)
  Receive Date: 20090430
  Receipt Date: 20090425
  Transmission Date: 20091009
  Serious: No
  Sender: FDA-Public Use
  Company Number: US-B.I. PHARMACEUTICALS,INC./RIDGEFIELD-2009-BP-05365BP

PATIENT
  Sex: Male
  Weight: 96.8 kg

DRUGS (2)
  1. ZANTAC 150 [Suspect]
     Indication: DYSPEPSIA
     Dosage: 150MG
     Route: 048
     Dates: start: 20090401
  2. ZOLOFT [Concomitant]
     Indication: DEPRESSION

REACTIONS (3)
  - DIZZINESS [None]
  - PRURITUS GENERALISED [None]
  - URTICARIA [None]
